FAERS Safety Report 26125291 (Version 1)
Quarter: 2025Q4

REPORT INFORMATION
  Report Type: Spontaneous
  Country: US (occurrence: None)
  Receive Date: 20251205
  Receipt Date: 20251205
  Transmission Date: 20260117
  Serious: Yes (Hospitalization)
  Sender: FDA-CTU
  Company Number: None

PATIENT
  Age: 76 Year
  Sex: Male
  Weight: 71.2 kg

DRUGS (3)
  1. FLUOROURACIL [Suspect]
     Active Substance: FLUOROURACIL
     Dates: end: 20250731
  2. LEUCOVORIN CALCIUM [Suspect]
     Active Substance: LEUCOVORIN CALCIUM
     Dates: end: 20250729
  3. ELOXATIN [Suspect]
     Active Substance: OXALIPLATIN
     Dates: end: 20250729

REACTIONS (3)
  - Cerebral infarction [None]
  - Retinal artery occlusion [None]
  - Blindness unilateral [None]

NARRATIVE: CASE EVENT DATE: 20251112
